FAERS Safety Report 11693043 (Version 1)
Quarter: 2015Q4

REPORT INFORMATION
  Report Type: Spontaneous
  Country: US (occurrence: None)
  Receive Date: 20151102
  Receipt Date: 20151102
  Transmission Date: 20160304
  Serious: No
  Sender: FDA-Public Use
  Company Number: None

PATIENT
  Age: 11 Year
  Sex: Female

DRUGS (2)
  1. HOMEOPATHIC CONSTIPATION RELIEF 20% ETHANOL CVS [Suspect]
     Active Substance: ALCOHOL
     Indication: CONSTIPATION
     Route: 048
  2. HOMEOPATHIC [Suspect]
     Active Substance: HOMEOPATHICS

REACTIONS (1)
  - Product label confusion [None]

NARRATIVE: CASE EVENT DATE: 20151029
